FAERS Safety Report 5254737-5 (Version None)
Quarter: 2007Q1

REPORT INFORMATION
  Report Type: 
  Country: None (occurrence: None)
  Receive Date: 20070228
  Receipt Date: 20070213
  Transmission Date: 20070707
  Serious: Yes (Death)
  Sender: FDA-Public Use
  Company Number: 8021058

PATIENT
  Age: 32 Year
  Sex: Male

DRUGS (13)
  1. LORTAB [Suspect]
     Indication: PAIN
  2. LORCET-HD [Suspect]
     Indication: PAIN
  3. TALWIN NX [Suspect]
     Indication: PAIN
  4. AMBIEN [Suspect]
     Indication: PAIN
  5. NORCO [Suspect]
     Indication: PAIN
  6. VICODIN [Suspect]
     Indication: PAIN
  7. TEMAZEPAM [Suspect]
     Indication: PAIN
  8. DALMANE [Suspect]
     Indication: PAIN
  9. RESTORIL [Suspect]
     Indication: PAIN
  10. LIPODERM [Suspect]
     Indication: PAIN
  11. LIDOPAIN [Suspect]
     Indication: PAIN
  12. ZONEGRAN [Concomitant]
  13. PROPONAPAT [Concomitant]

REACTIONS (37)
  - ABNORMAL DREAMS [None]
  - ADRENAL HAEMORRHAGE [None]
  - AMNESIA [None]
  - ANXIETY [None]
  - BASE EXCESS DECREASED [None]
  - BLOOD BICARBONATE DECREASED [None]
  - BLOOD CALCIUM DECREASED [None]
  - BLOOD CHLORIDE INCREASED [None]
  - BLOOD CREATINE INCREASED [None]
  - BLOOD POTASSIUM DECREASED [None]
  - BLOOD PRESSURE DECREASED [None]
  - BLOOD UREA INCREASED [None]
  - BODY TEMPERATURE DECREASED [None]
  - BRADYCARDIA [None]
  - BRAIN OEDEMA [None]
  - CARBON DIOXIDE DECREASED [None]
  - COMPLETED SUICIDE [None]
  - CONFUSIONAL STATE [None]
  - DEPRESSION [None]
  - FALL [None]
  - GUN SHOT WOUND [None]
  - HALLUCINATION [None]
  - HEART RATE INCREASED [None]
  - HYPOTONIA [None]
  - INJURY [None]
  - LOSS OF CONSCIOUSNESS [None]
  - LUNG DISORDER [None]
  - MOOD ALTERED [None]
  - MYDRIASIS [None]
  - NERVOUSNESS [None]
  - PCO2 DECREASED [None]
  - PH BODY FLUID DECREASED [None]
  - PO2 DECREASED [None]
  - PULMONARY OEDEMA [None]
  - PUPILLARY LIGHT REFLEX TESTS ABNORMAL [None]
  - SUICIDAL IDEATION [None]
  - VISUAL DISTURBANCE [None]
